FAERS Safety Report 6902431-4 (Version None)
Quarter: 2010Q3

REPORT INFORMATION
  Report Type: 
  Country: None (occurrence: None)
  Receive Date: 20100802
  Receipt Date: 20100802
  Transmission Date: 20110219
  Serious: Yes (Hospitalization, Other)
  Sender: FDA-Public Use
  Company Number: None

PATIENT
  Age: 76 Year
  Sex: Female
  Weight: 83.0083 kg

DRUGS (2)
  1. JANUVIA [Suspect]
     Indication: DIABETES MELLITUS
     Dosage: JANUVIA 50 MG DAILY PO
     Route: 048
     Dates: start: 20070501, end: 20100729
  2. LISINOPRIL [Suspect]
     Indication: HYPERTENSION
     Dosage: LISINOPRIL 2.5 MG DAILY PO
     Route: 048
     Dates: start: 20100401, end: 20100729

REACTIONS (1)
  - PANCREATITIS ACUTE [None]
